FAERS Safety Report 6171579-7 (Version None)
Quarter: 2009Q2

REPORT INFORMATION
  Report Type: 
  Country: None (occurrence: None)
  Receive Date: 20090429
  Receipt Date: 20090424
  Transmission Date: 20091009
  Serious: Yes (Hospitalization)
  Sender: FDA-Public Use
  Company Number: JP-ASTRAZENECA-2008AP09904

PATIENT
  Age: 44 Year
  Sex: Female

DRUGS (10)
  1. CRESTOR [Suspect]
     Indication: HYPERCHOLESTEROLAEMIA
     Route: 048
     Dates: start: 20070401, end: 20081219
  2. ASPIRIN [Concomitant]
     Route: 048
     Dates: start: 20031201
  3. PREDNISOLONE [Concomitant]
     Dosage: AFTER BREAKFAST
     Route: 048
     Dates: start: 19940101
  4. PREDONINE [Concomitant]
     Dosage: AFTER BREAKFAST, AFTER DINNER
     Route: 048
     Dates: start: 19940101
  5. GASTER D [Concomitant]
     Dosage: AFTER BREAKFAST, BEFORE BEDTIME
     Route: 048
     Dates: start: 20060201
  6. BONALON 35MG [Concomitant]
     Route: 048
     Dates: start: 20060201
  7. CLARITH [Concomitant]
     Dosage: BEFORE BEDTIME
     Route: 048
     Dates: start: 20070301
  8. ASPARA-CA [Concomitant]
     Dosage: DOSE UNKNOWN
     Route: 048
     Dates: start: 19981101
  9. ALFAROL [Concomitant]
     Dosage: DOSE UNKNOWN
     Route: 048
     Dates: start: 19981101
  10. JUVELA N [Concomitant]
     Dosage: DOSE UNKNOWN
     Route: 048
     Dates: start: 20040301

REACTIONS (9)
  - BLOOD LACTATE DEHYDROGENASE INCREASED [None]
  - CHEST PAIN [None]
  - DIZZINESS [None]
  - ELECTROCARDIOGRAM ABNORMAL [None]
  - HEADACHE [None]
  - HYPERTENSION [None]
  - MYELOBLAST COUNT INCREASED [None]
  - PALPITATIONS [None]
  - PLATELET COUNT DECREASED [None]
